FAERS Safety Report 4749437-1 (Version None)
Quarter: 2005Q3

REPORT INFORMATION
  Report Type: 
  Country: None (occurrence: None)
  Receive Date: 20050822
  Receipt Date: 20050808
  Transmission Date: 20060218
  Serious: Yes (Other)
  Sender: FDA-Public Use
  Company Number: US-JNJFOC-20050802199

PATIENT
  Sex: Male
  Weight: 72.8 kg

DRUGS (10)
  1. REMICADE [Suspect]
     Indication: RHEUMATOID ARTHRITIS
     Route: 042
  2. DILTIAZEM CD [Concomitant]
  3. LASIX [Concomitant]
  4. PROTONIX [Concomitant]
  5. FOLIC ACID [Concomitant]
  6. VICODIN [Concomitant]
  7. VICODIN [Concomitant]
     Dosage: 5/500
  8. LORAZEPAM [Concomitant]
  9. METHOTREXATE [Concomitant]
  10. LISINOPRIL [Concomitant]

REACTIONS (2)
  - GALLBLADDER DISORDER [None]
  - NON-HODGKIN'S LYMPHOMA [None]
